FAERS Safety Report 8511457-9 (Version None)
Quarter: 2012Q2

REPORT INFORMATION
  Report Type: 
  Country: None (occurrence: None)
  Receive Date: 20120629
  Receipt Date: 20120613
  Transmission Date: 20120825
  Serious: Yes (Hospitalization, Other)
  Sender: FDA-Public Use
  Company Number: ACO_30793_2012

PATIENT
  Age: 57 Year
  Sex: Female

DRUGS (14)
  1. MIRTAZAPINE [Concomitant]
  2. CALCIUM CARBONATE W/COLECALCIFEROL (LEUKOVIT CA) [Concomitant]
  3. KLIOGEST (KLIOGEST ^NOVO INDUSTRI^) [Concomitant]
  4. MITOXANTRONE (MOTOXANTRONE) [Concomitant]
  5. PIPAMPERONE (PIPAMPERONE) [Concomitant]
  6. AMLODIPINE [Concomitant]
  7. SPIRONOLACTONE [Concomitant]
  8. BACLOFEN [Concomitant]
  9. VESIKUR (KLIOGEST ^NOVO INDUSTRI^ [Concomitant]
  10. FAMPYRA (DALFAMPRIDINE) TABLET, 10MG [Suspect]
     Indication: GAIT DISTURBANCE
     Dosage: 10 MG, BID, ORAL
     Route: 048
     Dates: start: 20120224, end: 20120304
  11. DERMATOP [Concomitant]
  12. VENLAFAXINE HCL [Concomitant]
  13. RAMIPRIL [Concomitant]
  14. PANTOPRAZOLE [Concomitant]

REACTIONS (4)
  - INTERMEDIATE UVEITIS [None]
  - DERMATITIS ALLERGIC [None]
  - BUNDLE BRANCH BLOCK RIGHT [None]
  - MULTIPLE SCLEROSIS RELAPSE [None]
